FAERS Safety Report 7793458-1 (Version None)
Quarter: 2011Q4

REPORT INFORMATION
  Report Type: 
  Country: None (occurrence: None)
  Receive Date: 20111003
  Receipt Date: 20110929
  Transmission Date: 20120403
  Serious: Yes (Death, Other)
  Sender: FDA-Public Use
  Company Number: PHHY2011JP77160

PATIENT
  Age: 65 Year
  Sex: Male

DRUGS (8)
  1. OXALIPLATIN [Suspect]
     Indication: RECTAL CANCER STAGE IV
     Dosage: 100 MG, UNK
     Dates: end: 20061101
  2. FLUOROURACIL [Suspect]
     Dosage: 750 MG, UNK
     Dates: end: 20061101
  3. LEVOLEUCOVORIN CALCIUM [Suspect]
     Indication: RECTAL CANCER STAGE IV
     Dosage: 150 MG, UNK
     Dates: end: 20061101
  4. OXALIPLATIN [Suspect]
     Dosage: 100 MG, UNK
     Dates: start: 20071001
  5. FLUOROURACIL [Suspect]
     Dosage: 750 MG, UNK
     Dates: start: 20071001
  6. LEVOLEUCOVORIN CALCIUM [Suspect]
     Dosage: 150 MG, UNK
     Dates: start: 20071001
  7. IRINOTECAN HCL [Concomitant]
  8. FLUOROURACIL [Suspect]
     Indication: RECTAL CANCER STAGE IV
     Dosage: 450 MG, UNK

REACTIONS (12)
  - GENERAL PHYSICAL HEALTH DETERIORATION [None]
  - LYMPHADENOPATHY [None]
  - METASTASES TO MENINGES [None]
  - HYPOAESTHESIA [None]
  - NEOPLASM MALIGNANT [None]
  - URETHRAL OBSTRUCTION [None]
  - HYPERSENSITIVITY [None]
  - HYDRONEPHROSIS [None]
  - GAIT DISTURBANCE [None]
  - NEUROPATHY PERIPHERAL [None]
  - DIZZINESS [None]
  - BACK PAIN [None]
